FAERS Safety Report 20770570 (Version 1)
Quarter: 2022Q2

REPORT INFORMATION
  Report Type: Spontaneous
  Country: US (occurrence: None)
  Receive Date: 20220429
  Receipt Date: 20220429
  Transmission Date: 20220720
  Serious: Yes (Other)
  Sender: FDA-Public Use
  Company Number: None

PATIENT
  Age: 57 Year
  Sex: Male

DRUGS (4)
  1. AMBRISENTAN [Suspect]
     Active Substance: AMBRISENTAN
     Indication: Pulmonary arterial hypertension
     Dosage: FREQUENCY : DAILY;?
     Route: 048
  2. UPTRAVI [Suspect]
     Active Substance: SELEXIPAG
  3. MYCOPHENOLIC ACID [Suspect]
     Active Substance: MYCOPHENOLIC ACID
  4. SILDENAFIL [Concomitant]
     Active Substance: SILDENAFIL

REACTIONS (2)
  - Abdominal discomfort [None]
  - Night sweats [None]

NARRATIVE: CASE EVENT DATE: 20220429
